FAERS Safety Report 4450562-3 (Version None)
Quarter: 2004Q3

REPORT INFORMATION
  Report Type: 
  Country: None (occurrence: None)
  Receive Date: 20040914
  Receipt Date: 20040831
  Transmission Date: 20050211
  Serious: Yes (Hospitalization)
  Sender: FDA-Public Use
  Company Number: 2004047917

PATIENT
  Age: 48 Year
  Sex: Male
  Weight: 62.5964 kg

DRUGS (5)
  1. GEODON [Suspect]
     Indication: SCHIZOPHRENIA
     Dosage: 160 MG (80 MG, 2 IN 1 D), ORAL
     Route: 048
     Dates: start: 20040614
  2. ZOLOFT [Suspect]
     Indication: ILL-DEFINED DISORDER
     Dosage: 150 MG (1 IN 1 D), ORAL
     Route: 048
  3. OLANZAPINE [Suspect]
     Indication: ILL-DEFINED DISORDER
  4. QUETIAPINE FUMARATE (QUETIAPINE FUMARATE) [Concomitant]
  5. ESOMEPRAZOLE (ESOMEPRAZOLE) [Concomitant]
     Indication: ILL-DEFINED DISORDER

REACTIONS (4)
  - ABDOMINAL DISCOMFORT [None]
  - BOWEL SOUNDS ABNORMAL [None]
  - LOOSE STOOLS [None]
  - SCHIZOPHRENIA [None]
